FAERS Safety Report 14742169 (Version 3)
Quarter: 2019Q2

REPORT INFORMATION
  Report Type: Spontaneous
  Country: US (occurrence: US)
  Receive Date: 20180410
  Receipt Date: 20190510
  Transmission Date: 20190711
  Serious: Yes (Other)
  Sender: FDA-Public Use
  Company Number: US-ASTRAZENECA-2018SE42836

PATIENT
  Age: 821 Month
  Sex: Male
  Weight: 106.6 kg

DRUGS (29)
  1. NEXIUM [Suspect]
     Active Substance: ESOMEPRAZOLE MAGNESIUM
     Indication: BARRETT^S OESOPHAGUS
     Route: 048
     Dates: start: 1992, end: 2018
  2. CLONIDINE. [Concomitant]
     Active Substance: CLONIDINE
  3. NEXIUM [Suspect]
     Active Substance: ESOMEPRAZOLE MAGNESIUM
     Indication: BARRETT^S OESOPHAGUS
     Route: 048
     Dates: start: 2008
  4. NEXIUM [Suspect]
     Active Substance: ESOMEPRAZOLE MAGNESIUM
     Indication: BARRETT^S OESOPHAGUS
     Route: 048
     Dates: start: 20080417
  5. NIFEDIPINE. [Concomitant]
     Active Substance: NIFEDIPINE
  6. CLARITIN [Concomitant]
     Active Substance: LORATADINE
  7. VITAMIN K2 [Concomitant]
     Active Substance: MENAQUINONE 6
  8. BYETTA [Concomitant]
     Active Substance: EXENATIDE
  9. DIOVAN [Concomitant]
     Active Substance: VALSARTAN
  10. ISRADIPINE. [Concomitant]
     Active Substance: ISRADIPINE
  11. LIPITOR [Concomitant]
     Active Substance: ATORVASTATIN CALCIUM
  12. DOXAZOSIN [Concomitant]
     Active Substance: DOXAZOSIN\DOXAZOSIN MESYLATE
  13. AMERTIL [Concomitant]
     Active Substance: CETIRIZINE HYDROCHLORIDE
  14. TOPROL XL [Concomitant]
     Active Substance: METOPROLOL SUCCINATE
  15. INSPRA [Concomitant]
     Active Substance: EPLERENONE
  16. HYDROCHLOROTHIAZIDE. [Concomitant]
     Active Substance: HYDROCHLOROTHIAZIDE
  17. GLUCOPHAGE [Concomitant]
     Active Substance: METFORMIN HYDROCHLORIDE
  18. PRILOSEC [Concomitant]
     Active Substance: OMEPRAZOLE MAGNESIUM
  19. PANTOPRAZOLE [Suspect]
     Active Substance: PANTOPRAZOLE
     Indication: BARRETT^S OESOPHAGUS
     Route: 065
     Dates: start: 2018
  20. ALLOPURINOL. [Concomitant]
     Active Substance: ALLOPURINOL
  21. VITAMIN D3 [Concomitant]
     Active Substance: CHOLECALCIFEROL
  22. METAMUCIL [Concomitant]
     Active Substance: PLANTAGO SEED
  23. METFORMIN [Concomitant]
     Active Substance: METFORMIN HYDROCHLORIDE
  24. CARDIZEM [Concomitant]
     Active Substance: DILTIAZEM HYDROCHLORIDE
  25. ACIPHEX [Suspect]
     Active Substance: RABEPRAZOLE SODIUM
     Indication: BARRETT^S OESOPHAGUS
     Route: 065
     Dates: start: 2003, end: 2007
  26. DIOVAN/HYDROCHLOROTHIAZIDE [Concomitant]
  27. COREG [Concomitant]
     Active Substance: CARVEDILOL
  28. COLCHICINE. [Concomitant]
     Active Substance: COLCHICINE
  29. ZANTAC [Concomitant]
     Active Substance: RANITIDINE HYDROCHLORIDE

REACTIONS (2)
  - Renal failure [Unknown]
  - Chronic kidney disease [Unknown]

NARRATIVE: CASE EVENT DATE: 201603
